FAERS Safety Report 4721577-2 (Version None)
Quarter: 2005Q3

REPORT INFORMATION
  Report Type: 
  Country: None (occurrence: None)
  Receive Date: 20050721
  Receipt Date: 20041207
  Transmission Date: 20060218
  Serious: No
  Sender: FDA-Public Use
  Company Number: US-BRISTOL-MYERS SQUIBB COMPANY-12788428

PATIENT
  Age: 80 Year
  Sex: Female
  Weight: 88 kg

DRUGS (8)
  1. COUMADIN [Suspect]
     Indication: CEREBROVASCULAR ACCIDENT
  2. MULTIVITAMIN [Suspect]
  3. PLAQUENIL [Concomitant]
  4. PREDNISONE [Concomitant]
  5. CITRACAL [Concomitant]
  6. HYZAAR [Concomitant]
  7. LIPITOR [Concomitant]
  8. CELEBREX [Concomitant]

REACTIONS (4)
  - ARTHRALGIA [None]
  - BLOOD POTASSIUM DECREASED [None]
  - REACTION TO COLOURING [None]
  - URTICARIA [None]
